FAERS Safety Report 10188757 (Version 1)
Quarter: 2014Q2

REPORT INFORMATION
  Report Type: Spontaneous
  Country: JP (occurrence: JP)
  Receive Date: 20140522
  Receipt Date: 20140522
  Transmission Date: 20141212
  Serious: Yes (Death)
  Sender: FDA-Public Use
  Company Number: JP-MALLINCKRODT-T201402260

PATIENT
  Age: 54 Year
  Sex: Male

DRUGS (10)
  1. METHADONE [Suspect]
     Indication: CANCER PAIN
     Dosage: 5 MG, (15 MG DAILY DOSE)
     Route: 048
     Dates: start: 20140218, end: 20140224
  2. METHADONE [Suspect]
     Dosage: 10 MG, (30 MG DAILY DOSE)
     Route: 048
     Dates: start: 20140225, end: 20140228
  3. MORPHINE HYDROCHLORIDE [Concomitant]
     Dosage: 3 MG, PRN
     Route: 051
     Dates: start: 20140217
  4. RISPERDAL [Concomitant]
     Dosage: 2 MG, UNK
     Route: 048
     Dates: start: 20140212, end: 20140301
  5. FENTOS [Concomitant]
     Dosage: 4 MG, UNK
     Route: 062
     Dates: end: 20140301
  6. SILECE [Concomitant]
     Dosage: 2 MG, UNK
     Route: 051
     Dates: start: 20140214, end: 20140224
  7. GABAPEN [Concomitant]
     Dosage: 1200 MG, UNK
     Route: 048
     Dates: start: 20140214, end: 20140226
  8. NAIXAN [Concomitant]
     Dosage: 600 MG, UNK
     Route: 048
     Dates: start: 20140214, end: 20140226
  9. CYMBALTA [Concomitant]
     Dosage: 20 MG, UNK
     Route: 048
     Dates: start: 20140217, end: 20140226
  10. NEXIUM [Concomitant]
     Dosage: 20 MG, UNK
     Route: 048
     Dates: start: 20140214, end: 20140226

REACTIONS (1)
  - Pancreatic carcinoma [Fatal]
